FAERS Safety Report 9307656 (Version 2)
Quarter: 2013Q4

REPORT INFORMATION
  Report Type: Spontaneous
  Country: US (occurrence: US)
  Receive Date: 20130524
  Receipt Date: 20131209
  Transmission Date: 20140711
  Serious: Yes (Hospitalization, Other)
  Sender: FDA-Public Use
  Company Number: US-BAYER-2013-064239

PATIENT
  Age: 18 Year
  Sex: Female

DRUGS (5)
  1. YAZ [Suspect]
     Indication: AMENORRHOEA
     Dosage: UNK
     Dates: start: 20090405, end: 20091126
  2. YASMIN [Suspect]
     Dosage: UNK
     Dates: start: 20090405, end: 20091126
  3. ADDERALL [Concomitant]
     Dosage: 20 MG, UNK
  4. CLARITHROMYCIN [Concomitant]
     Dosage: 500 MG, UNK
  5. OXYCODONE [Concomitant]

REACTIONS (7)
  - Gallbladder injury [None]
  - Cholecystitis chronic [None]
  - Pain [None]
  - Injury [None]
  - Emotional distress [None]
  - Pain [None]
  - Anhedonia [None]
